FAERS Safety Report 14060812 (Version 8)
Quarter: 2018Q2

REPORT INFORMATION
  Report Type: Spontaneous
  Country: US (occurrence: US)
  Receive Date: 20171009
  Receipt Date: 20180413
  Transmission Date: 20180711
  Serious: Yes (Congenital Anomaly, Other)
  Sender: FDA-Public Use
  Company Number: PHEH2017US031891

PATIENT
  Sex: Male

DRUGS (2)
  1. ONDANSETRON [Suspect]
     Active Substance: ONDANSETRON
     Indication: FOETAL EXPOSURE DURING PREGNANCY
     Dosage: MOTHER DOSE: UNK, PRN
     Route: 064
  2. ZOFRAN [Suspect]
     Active Substance: ONDANSETRON HYDROCHLORIDE
     Indication: FOETAL EXPOSURE DURING PREGNANCY
     Dosage: MOTHER DOSE: 4 MG, UNK
     Route: 064

REACTIONS (14)
  - Trisomy 21 [Unknown]
  - Injury [Unknown]
  - Dry skin [Unknown]
  - Alopecia [Unknown]
  - Bronchitis [Unknown]
  - Learning disorder [Unknown]
  - Rash [Not Recovered/Not Resolved]
  - Skin lesion [Unknown]
  - Eczema [Unknown]
  - Tinea capitis [Unknown]
  - Asthma [Unknown]
  - Dyslexia [Unknown]
  - Foetal exposure during pregnancy [Unknown]
  - Cardiac murmur [Unknown]

NARRATIVE: CASE EVENT DATE: 2016
